FAERS Safety Report 16544235 (Version 4)
Quarter: 2019Q3

REPORT INFORMATION
  Report Type: Spontaneous
  Country: US (occurrence: US)
  Receive Date: 20190709
  Receipt Date: 20190805
  Transmission Date: 20191004
  Serious: No
  Sender: FDA-Public Use
  Company Number: US-PFIZER INC-2019280396

PATIENT
  Age: 58 Year
  Sex: Male

DRUGS (4)
  1. CHANTIX [Suspect]
     Active Substance: VARENICLINE TARTRATE
     Indication: SMOKING CESSATION THERAPY
     Dosage: UNK
  2. CHANTIX [Suspect]
     Active Substance: VARENICLINE TARTRATE
     Dosage: 1 MG, 1X/DAY
  3. CHANTIX [Suspect]
     Active Substance: VARENICLINE TARTRATE
     Dosage: 2 MG, 2X/DAY
  4. CHANTIX [Suspect]
     Active Substance: VARENICLINE TARTRATE
     Dosage: 4 MG, DAILY

REACTIONS (10)
  - Therapeutic product effect incomplete [Unknown]
  - Agitation [Not Recovered/Not Resolved]
  - Drug withdrawal syndrome [Unknown]
  - Depression [Not Recovered/Not Resolved]
  - Nervousness [Unknown]
  - Anxiety [Not Recovered/Not Resolved]
  - Condition aggravated [Unknown]
  - Intentional product use issue [Unknown]
  - Euphoric mood [Unknown]
  - Tobacco user [Unknown]
